FAERS Safety Report 7565801-X (Version None)
Quarter: 2011Q2

REPORT INFORMATION
  Report Type: 
  Country: None (occurrence: None)
  Receive Date: 20110623
  Receipt Date: 20110620
  Transmission Date: 20111010
  Serious: No
  Sender: FDA-Public Use
  Company Number: US-PFIZER INC-2011137020

PATIENT
  Sex: Female
  Weight: 74.83 kg

DRUGS (6)
  1. METFORMIN [Concomitant]
     Indication: DIABETES MELLITUS
     Dosage: 1000 MG, 2X/DAY
     Route: 048
  2. EVISTA [Concomitant]
     Indication: CARDIAC DISORDER
     Dosage: 60 MG, DAILY
     Route: 048
  3. LISINOPRIL [Concomitant]
     Indication: HYPERTENSION
     Dosage: 20 MG, UNK
     Route: 048
  4. ZETIA [Concomitant]
     Indication: BLOOD CHOLESTEROL ABNORMAL
     Dosage: 10 MG, UNK
     Route: 048
  5. LYRICA [Suspect]
     Indication: MYALGIA
     Dosage: 50 MG, 2X/DAY
     Route: 048
     Dates: start: 20110401
  6. LYRICA [Suspect]
     Indication: PAIN IN EXTREMITY

REACTIONS (1)
  - ALOPECIA [None]
